FAERS Safety Report 4596235-8 (Version None)
Quarter: 2005Q1

REPORT INFORMATION
  Report Type: 
  Country: None (occurrence: None)
  Receive Date: 20050225
  Receipt Date: 20050218
  Transmission Date: 20050727
  Serious: No
  Sender: FDA-Public Use
  Company Number: 2005PK00291

PATIENT
  Age: 50 Year
  Sex: Female
  Weight: 94 kg

DRUGS (1)
  1. SEROQUEL [Suspect]
     Indication: DELUSION
     Dosage: 800 MG DAILY PO
     Route: 048
     Dates: start: 20040907, end: 20041026

REACTIONS (1)
  - LEUKOPENIA [None]
